FAERS Safety Report 9729796 (Version 4)
Quarter: 2014Q1

REPORT INFORMATION
  Report Type: Spontaneous
  Country: IT (occurrence: None)
  Receive Date: 20131203
  Receipt Date: 20140203
  Transmission Date: 20141002
  Serious: Yes (Hospitalization)
  Sender: FDA-Public Use
  Company Number: AUR-APL-2013-09897

PATIENT
  Age: 82 Year
  Sex: Male

DRUGS (8)
  1. BISOPROLOL [Suspect]
     Indication: HYPERTENSION
     Dosage: 1 DOSAGE FORMS, 1 D) ORAL
     Route: 048
     Dates: start: 20110101, end: 20130201
  2. TRIATEC [Suspect]
     Indication: HYPERTENSION
     Dosage: 1 DOSAGE FORMS, 1 D, ORAL
     Route: 048
     Dates: start: 20100101, end: 20130201
  3. CARDIOASPIRIN (ACETYLSALICYLIC ACID) [Concomitant]
  4. SPIRIVA (TIOTROPIIUM BROMIDE) [Concomitant]
  5. SIMVASTATIN (SIMVASTATIN) [Concomitant]
  6. METFORMINA (METFORMIN) [Concomitant]
  7. ALLOPURINOL [Concomitant]
  8. OMEPRAZOLE (OMEPRAZOLE) [Concomitant]

REACTIONS (2)
  - Orthostatic hypotension [None]
  - Presyncope [None]
